FAERS Safety Report 10618963 (Version 1)
Quarter: 2014Q4

REPORT INFORMATION
  Report Type: Spontaneous
  Country: BE (occurrence: None)
  Receive Date: 20141126
  Receipt Date: 20141126
  Transmission Date: 20150529
  Serious: Yes (Hospitalization)
  Sender: FDA-Public Use
  Company Number: IMP_08226_2014

PATIENT
  Age: 24 Year
  Sex: Male

DRUGS (4)
  1. MIDAZOLAM [Suspect]
     Active Substance: MIDAZOLAM\MIDAZOLAM HYDROCHLORIDE
     Indication: PRODUCT USED FOR UNKNOWN INDICATION
     Dosage: 20 DF, 1X, [NOT THE PRESCRIBED DOSE] ORAL
     Route: 048
  2. CHLOROQUINE [Suspect]
     Active Substance: CHLOROQUINE\CHLOROQUINE PHOSPHATE
     Indication: PRODUCT USED FOR UNKNOWN INDICATION
     Dosage: 58 DF 1X, [NOT PRESCRIBED DOSE] ORAL?
     Route: 048
  3. ONDANSETRON [Suspect]
     Active Substance: ONDANSETRON
     Indication: PRODUCT USED FOR UNKNOWN INDICATION
     Dosage: 10 DF 1X, [NOT THE PRESCRIBE DOSE], ORAL
     Route: 048
  4. DOMPERIDON [Suspect]
     Active Substance: DOMPERIDONE
     Indication: PRODUCT USED FOR UNKNOWN INDICATION
     Dosage: 5 DF 1X, [NOT THE PRESCRIBE DOSE], ORAL
     Route: 048

REACTIONS (9)
  - Blood pressure decreased [None]
  - Poisoning deliberate [None]
  - Nodal rhythm [None]
  - Cardiac arrest [None]
  - Loss of consciousness [None]
  - Ventricular fibrillation [None]
  - No therapeutic response [None]
  - Brain death [None]
  - Pulseless electrical activity [None]
